FAERS Safety Report 24029487 (Version 3)
Quarter: 2025Q2

REPORT INFORMATION
  Report Type: Spontaneous
  Country: ES (occurrence: ES)
  Receive Date: 20240628
  Receipt Date: 20250514
  Transmission Date: 20250716
  Serious: Yes (Death, Hospitalization, Other)
  Sender: ZAMBON
  Company Number: ES-ZAMBON-202401794ESP

PATIENT

DRUGS (7)
  1. FOSFOMYCIN TROMETHAMINE [Suspect]
     Active Substance: FOSFOMYCIN TROMETHAMINE
     Indication: Urinary tract infection
     Route: 065
     Dates: start: 20230424, end: 20230426
  2. TIGECYCLINE [Suspect]
     Active Substance: TIGECYCLINE
     Indication: Pyrexia
     Dosage: 50 MG, BID
     Route: 042
     Dates: start: 20230506, end: 20230508
  3. METRONIDAZOLE [Suspect]
     Active Substance: METRONIDAZOLE
     Indication: Infection
     Dosage: 800 MG, TID
     Route: 048
     Dates: start: 20230504, end: 20230505
  4. VALGANCICLOVIR [Suspect]
     Active Substance: VALGANCICLOVIR
     Indication: Cytomegalovirus infection
     Dosage: 450 MG, BID
     Route: 048
     Dates: start: 20230317, end: 20230415
  5. CETIRIZINE HYDROCHLORIDE [Suspect]
     Active Substance: CETIRIZINE HYDROCHLORIDE
     Indication: Psoriasis
     Dosage: 5 MG, DAILY
     Route: 048
     Dates: start: 20230321, end: 20230512
  6. AZTREONAM [Suspect]
     Active Substance: AZTREONAM
     Indication: Pyrexia
     Dosage: 1 G, TID
     Route: 042
     Dates: start: 20230506, end: 20230508
  7. CIPROFLOXACIN HYDROCHLORIDE [Suspect]
     Active Substance: CIPROFLOXACIN HYDROCHLORIDE
     Indication: Infection
     Dosage: 500 MG, BID
     Route: 048
     Dates: start: 20230504, end: 20230506

REACTIONS (2)
  - Toxic epidermal necrolysis [Fatal]
  - Off label use [Unknown]

NARRATIVE: CASE EVENT DATE: 20230511
